FAERS Safety Report 9379099 (Version 2)
Quarter: 2013Q3

REPORT INFORMATION
  Report Type: Report from Study
  Country: US (occurrence: US)
  Receive Date: 20130702
  Receipt Date: 20130711
  Transmission Date: 20140515
  Serious: Yes (Death)
  Sender: FDA-Public Use
  Company Number: PHEH2013US014117

PATIENT
  Sex: Male

DRUGS (1)
  1. TOBI [Suspect]
     Indication: BRONCHIECTASIS
     Dosage: 300 MG, BID
     Dates: start: 20130313

REACTIONS (4)
  - Sepsis [Fatal]
  - Colitis [Fatal]
  - Hypogammaglobulinaemia [Fatal]
  - Chronic lymphocytic leukaemia [Fatal]
